FAERS Safety Report 15452013 (Version 3)
Quarter: 2018Q4

REPORT INFORMATION
  Report Type: Spontaneous
  Country: BE (occurrence: BE)
  Receive Date: 20181001
  Receipt Date: 20181010
  Transmission Date: 20190204
  Serious: Yes (Other)
  Sender: FDA-Public Use
  Company Number: BE-PFIZER INC-2018392310

PATIENT
  Age: 23 Year
  Sex: Female
  Weight: 70 kg

DRUGS (4)
  1. FOLAVIT [Suspect]
     Active Substance: FOLIC ACID
     Indication: PREGNANCY
     Dosage: UNK
     Route: 048
     Dates: start: 20180101
  2. ACTRAPID [INSULIN PORCINE] [Suspect]
     Active Substance: INSULIN PORK\INSULIN PURIFIED PORK
     Indication: DIABETES MELLITUS
     Dosage: UNK
     Route: 042
     Dates: start: 20180227
  3. LUCENTIS [Suspect]
     Active Substance: RANIBIZUMAB
     Indication: DIABETIC RETINAL OEDEMA
     Dosage: UNK
     Route: 065
     Dates: start: 2018
  4. PANTOMED (PANTOPRAZOLE SODIUM SESQUIHYDRATE) [Suspect]
     Active Substance: PANTOPRAZOLE SODIUM
     Indication: ULCER
     Dosage: UNK
     Route: 048
     Dates: start: 20171214, end: 20180419

REACTIONS (3)
  - Premature delivery [Unknown]
  - Diabetic retinopathy [Unknown]
  - Condition aggravated [Unknown]

NARRATIVE: CASE EVENT DATE: 20180828
